FAERS Safety Report 16901344 (Version 1)
Quarter: 2019Q4

REPORT INFORMATION
  Report Type: Report from Study
  Country: None (occurrence: US)
  Receive Date: 20191009
  Receipt Date: 20191009
  Transmission Date: 20200122
  Serious: Yes (Hospitalization, Other)
  Sender: FDA-Public Use
  Company Number: US-ABBVIE-19K-163-2918700-00

PATIENT
  Age: 44 Year
  Sex: Male

DRUGS (3)
  1. SYNTHROID [Suspect]
     Active Substance: LEVOTHYROXINE SODIUM
     Indication: HYPOTHALAMO-PITUITARY DISORDER
     Dosage: 80-100-110 MICROGRAM.
     Route: 048
     Dates: start: 1989
  2. SYNTHROID [Suspect]
     Active Substance: LEVOTHYROXINE SODIUM
     Route: 048
  3. ANDROGEL [Suspect]
     Active Substance: TESTOSTERONE
     Indication: ANDROGEN DEFICIENCY
     Dosage: ANDROGEL PUMP
     Route: 061
     Dates: start: 1989

REACTIONS (4)
  - Transient ischaemic attack [Recovering/Resolving]
  - Testis cancer [Recovered/Resolved]
  - Photopsia [Recovering/Resolving]
  - Blood triglycerides increased [Recovering/Resolving]

NARRATIVE: CASE EVENT DATE: 20190906
